FAERS Safety Report 15433953 (Version 3)
Quarter: 2018Q4

REPORT INFORMATION
  Report Type: Spontaneous
  Country: US (occurrence: US)
  Receive Date: 20180927
  Receipt Date: 20181227
  Transmission Date: 20190204
  Serious: No
  Sender: FDA-Public Use
  Company Number: US-SA-2018SA268190

PATIENT
  Age: 69 Year
  Sex: Female

DRUGS (10)
  1. TECFIDERA [Concomitant]
     Active Substance: DIMETHYL FUMARATE
  2. METFORMIN HCL [Concomitant]
     Active Substance: METFORMIN HYDROCHLORIDE
  3. LATANOPROST. [Concomitant]
     Active Substance: LATANOPROST
  4. BACLOFEN. [Concomitant]
     Active Substance: BACLOFEN
  5. LOSARTAN POTASSSIUM [Concomitant]
     Dosage: UNK MG
  6. AUBAGIO [Suspect]
     Active Substance: TERIFLUNOMIDE
     Dosage: 14 MG, QD
     Route: 048
     Dates: start: 20150119
  7. TOVIAZ [Concomitant]
     Active Substance: FESOTERODINE FUMARATE
  8. INTRINSI B12/FOLATE [Concomitant]
  9. VITAMIN D [Concomitant]
     Active Substance: CHOLECALCIFEROL
  10. MYRBETRIQ [Concomitant]
     Active Substance: MIRABEGRON
     Dosage: UNK MG

REACTIONS (2)
  - Diarrhoea [Not Recovered/Not Resolved]
  - Headache [Not Recovered/Not Resolved]
